FAERS Safety Report 8173893-2 (Version None)
Quarter: 2012Q1

REPORT INFORMATION
  Report Type: 
  Country: None (occurrence: None)
  Receive Date: 20120229
  Receipt Date: 20120215
  Transmission Date: 20120608
  Serious: Yes (Hospitalization)
  Sender: FDA-Public Use
  Company Number: DE-ELI_LILLY_AND_COMPANY-DE201202005020

PATIENT
  Age: 33 Year
  Sex: Female

DRUGS (4)
  1. CYMBALTA [Suspect]
     Dosage: 15 MG, UNK
  2. CYMBALTA [Suspect]
     Dosage: UNK, UNKNOWN
     Dates: start: 20110201
  3. CYMBALTA [Suspect]
     Dosage: UNK
     Route: 048
     Dates: end: 20101101
  4. CYMBALTA [Suspect]
     Dosage: UNK, UNKNOWN
     Dates: end: 20110301

REACTIONS (10)
  - INTENTIONAL DRUG MISUSE [None]
  - PARAESTHESIA [None]
  - HOSPITALISATION [None]
  - INSOMNIA [None]
  - MYALGIA [None]
  - INFLUENZA LIKE ILLNESS [None]
  - PANIC ATTACK [None]
  - DEREALISATION [None]
  - ALTERED STATE OF CONSCIOUSNESS [None]
  - DRUG WITHDRAWAL SYNDROME [None]
